FAERS Safety Report 24973732 (Version 1)
Quarter: 2025Q1

REPORT INFORMATION
  Report Type: Spontaneous
  Country: BS (occurrence: BS)
  Receive Date: 20250217
  Receipt Date: 20250217
  Transmission Date: 20250409
  Serious: Yes (Other)
  Sender: UCB
  Company Number: BS-UCBSA-2025008406

PATIENT
  Sex: Female

DRUGS (1)
  1. NAYZILAM [Suspect]
     Active Substance: MIDAZOLAM
     Indication: Seizure
     Route: 045

REACTIONS (4)
  - Seizure cluster [Not Recovered/Not Resolved]
  - Vagal nerve stimulator implantation [Unknown]
  - Wound [Unknown]
  - Inability to afford medication [Unknown]
